FAERS Safety Report 17532086 (Version 1)
Quarter: 2020Q1

REPORT INFORMATION
  Report Type: Spontaneous
  Country: CN (occurrence: CN)
  Receive Date: 20200311
  Receipt Date: 20200311
  Transmission Date: 20200409
  Serious: Yes (Other)
  Sender: FDA-Public Use
  Company Number: CN-ABBVIE-20K-035-3308167-00

PATIENT
  Age: 53 Year
  Sex: Male
  Weight: 59 kg

DRUGS (6)
  1. ALUVIA 200/50 [Suspect]
     Active Substance: LOPINAVIR\RITONAVIR
     Indication: PNEUMONIA VIRAL
     Route: 048
     Dates: start: 20200213, end: 20200225
  2. RIBAVIRIN. [Concomitant]
     Active Substance: RIBAVIRIN
     Indication: PRODUCT USED FOR UNKNOWN INDICATION
     Route: 041
     Dates: start: 20200211, end: 20200302
  3. SODIUM CHLORIDE. [Concomitant]
     Active Substance: SODIUM CHLORIDE
     Indication: PRODUCT USED FOR UNKNOWN INDICATION
     Route: 041
     Dates: start: 20200211, end: 20200302
  4. ARBIDOL [Suspect]
     Active Substance: UMIFENOVIR
     Indication: PNEUMONIA VIRAL
  5. ALUVIA 200/50 [Suspect]
     Active Substance: LOPINAVIR\RITONAVIR
     Indication: CORONA VIRUS INFECTION
  6. ARBIDOL [Suspect]
     Active Substance: UMIFENOVIR
     Indication: CORONA VIRUS INFECTION
     Route: 048
     Dates: start: 20200213, end: 20200220

REACTIONS (2)
  - Off label use [Unknown]
  - Hepatic function abnormal [Recovered/Resolved]

NARRATIVE: CASE EVENT DATE: 20200213
